FAERS Safety Report 9583131 (Version 2)
Quarter: 2013Q4

REPORT INFORMATION
  Report Type: Spontaneous
  Country: US (occurrence: US)
  Receive Date: 20131002
  Receipt Date: 20131002
  Transmission Date: 20140711
  Serious: No
  Sender: FDA-Public Use
  Company Number: US-AMGEN-USASP2013041619

PATIENT
  Age: 39 Year
  Sex: Female
  Weight: 86.17 kg

DRUGS (4)
  1. ENBREL [Suspect]
     Indication: RHEUMATOID ARTHRITIS
     Dosage: UNK, QWK
     Route: 058
     Dates: start: 201209, end: 201303
  2. SINGULAIR [Concomitant]
     Dosage: 4 MG, CHW
  3. PLAQUENIL                          /00072602/ [Concomitant]
     Dosage: 200 MG, UNK
  4. TOPAMAX [Concomitant]
     Dosage: 100 MG, UNK

REACTIONS (5)
  - Abdominal discomfort [Recovered/Resolved]
  - Alopecia [Unknown]
  - Vomiting [Recovered/Resolved]
  - Diarrhoea [Recovered/Resolved]
  - Pruritus generalised [Recovered/Resolved]
